FAERS Safety Report 7538905-5 (Version None)
Quarter: 2011Q2

REPORT INFORMATION
  Report Type: 
  Country: None (occurrence: None)
  Receive Date: 20110610
  Receipt Date: 20110527
  Transmission Date: 20111010
  Serious: Yes (Hospitalization)
  Sender: FDA-Public Use
  Company Number: JP-JNJFOC-20110508664

PATIENT
  Sex: Female

DRUGS (23)
  1. PANVITAN [Concomitant]
     Indication: PRODUCT USED FOR UNKNOWN INDICATION
     Route: 065
  2. NAUZELIN [Concomitant]
     Indication: VOMITING
     Route: 065
     Dates: start: 20110322, end: 20110326
  3. NAUZELIN [Concomitant]
     Indication: NAUSEA
     Route: 065
     Dates: start: 20110322, end: 20110326
  4. PURSENNID [Concomitant]
     Indication: PRODUCT USED FOR UNKNOWN INDICATION
     Route: 065
     Dates: start: 20110322, end: 20110326
  5. BETAMETHASONE [Concomitant]
     Indication: PRODUCT USED FOR UNKNOWN INDICATION
     Dosage: 30 MIN AFTER BREAKFAST
     Route: 065
     Dates: end: 20110302
  6. ZOLPIDEM [Concomitant]
     Indication: INSOMNIA
     Route: 065
     Dates: start: 20110322, end: 20110326
  7. MIYA BM [Concomitant]
     Route: 065
     Dates: start: 20110322, end: 20110409
  8. VITAMEDIN [Concomitant]
     Route: 042
     Dates: start: 20110322, end: 20110325
  9. BETAMETHASONE [Concomitant]
     Route: 042
     Dates: start: 20110323, end: 20110325
  10. LEVOFLOXACIN [Suspect]
     Dosage: 500 MG/ML
     Route: 041
     Dates: start: 20110331, end: 20110402
  11. MUCODYNE [Concomitant]
     Indication: PRODUCT USED FOR UNKNOWN INDICATION
     Dosage: 30 MIN AFTER MEAL
     Route: 065
     Dates: end: 20110302
  12. BETAMETHASONE [Concomitant]
     Dosage: 30 MIN AFTER BREAKFAST
     Route: 065
     Dates: start: 20110322, end: 20110325
  13. SODIUM CHLORIDE [Concomitant]
     Route: 042
     Dates: start: 20110331, end: 20110402
  14. ACETAMINOPHEN [Concomitant]
     Indication: PRODUCT USED FOR UNKNOWN INDICATION
     Route: 065
     Dates: start: 20110322, end: 20110326
  15. MUCODYNE [Concomitant]
     Dosage: 30 MIN AFTER MEAL
     Route: 065
     Dates: start: 20110322, end: 20110325
  16. RABEPRAZOLE SODIUM [Concomitant]
     Indication: PRODUCT USED FOR UNKNOWN INDICATION
     Dosage: 30 MIN AFTER BREAKFAST
     Route: 065
     Dates: end: 20110302
  17. PRIMPERAN TAB [Concomitant]
     Route: 042
     Dates: start: 20110322, end: 20110325
  18. ASTOMIN [Concomitant]
     Indication: PRODUCT USED FOR UNKNOWN INDICATION
     Dosage: 30 MIN AFTER MEAL
     Route: 065
     Dates: end: 20110302
  19. LEVOFLOXACIN [Suspect]
     Indication: ENTEROCOLITIS
     Route: 065
     Dates: start: 20110322, end: 20110328
  20. ASTOMIN [Concomitant]
     Dosage: 30 MIN AFTER MEAL
     Route: 065
     Dates: start: 20110322, end: 20110325
  21. RABEPRAZOLE SODIUM [Concomitant]
     Dosage: 30 MIN AFTER BREAKFAST
     Route: 065
     Dates: start: 20110322, end: 20110325
  22. MIYA BM [Concomitant]
     Route: 065
     Dates: start: 20110411, end: 20110426
  23. FAMOTIDINE [Concomitant]
     Route: 042
     Dates: start: 20110322, end: 20110325

REACTIONS (1)
  - LUNG DISORDER [None]
